FAERS Safety Report 6537303-0 (Version None)
Quarter: 2010Q1

REPORT INFORMATION
  Report Type: 
  Country: None (occurrence: None)
  Receive Date: 20100110
  Receipt Date: 20091223
  Transmission Date: 20100710
  Serious: Yes (Hospitalization, Other)
  Sender: FDA-Public Use
  Company Number: 2006-145229-NL

PATIENT
  Age: 40 Year
  Sex: Female

DRUGS (7)
  1. NUVARING [Suspect]
     Indication: DRUG USE FOR UNKNOWN INDICATION
     Dosage: VAG
     Route: 067
     Dates: start: 20030801
  2. EFFEXOR XR (CON.) [Concomitant]
  3. IMIPRAMINE (CON.) [Concomitant]
  4. TYLENOL WITH CODEINE (CON.) [Concomitant]
  5. ALLEGRA (CON.) [Concomitant]
  6. TYLENOL (CON.) [Concomitant]
  7. BENADRYL (CON.) [Concomitant]

REACTIONS (23)
  - ABORTION INDUCED [None]
  - ACNE [None]
  - AMNESIA [None]
  - ANXIETY [None]
  - BREAST DISCHARGE [None]
  - BREAST HYPERPLASIA [None]
  - CEREBROVASCULAR ACCIDENT [None]
  - CHEST DISCOMFORT [None]
  - CHEST PAIN [None]
  - DEEP VEIN THROMBOSIS [None]
  - DEPRESSION [None]
  - DISTURBANCE IN ATTENTION [None]
  - DIZZINESS [None]
  - ECZEMA [None]
  - EPISTAXIS [None]
  - HYPERCOAGULATION [None]
  - MENOMETRORRHAGIA [None]
  - METAPLASIA [None]
  - MIGRAINE [None]
  - MITRAL VALVE PROLAPSE [None]
  - POST THROMBOTIC SYNDROME [None]
  - PREGNANCY [None]
  - VENOUS INSUFFICIENCY [None]
